FAERS Safety Report 9036860 (Version 1)
Quarter: 2013Q1

REPORT INFORMATION
  Report Type: Spontaneous
  Country: US (occurrence: None)
  Receive Date: 20130118
  Receipt Date: 20130118
  Transmission Date: 20140127
  Serious: Yes (Life-Threatening)
  Sender: FDA-Public Use
  Company Number: None

PATIENT
  Age: 54 Year
  Sex: Female
  Weight: 77.11 kg

DRUGS (5)
  1. FLUVOXAMINE [Suspect]
     Indication: OBSESSIVE-COMPULSIVE DISORDER
     Dosage: 1X DAY AT BEDTIME
     Route: 048
     Dates: start: 20121204, end: 20121220
  2. LAMICTAL [Concomitant]
  3. CYMBALTA [Concomitant]
  4. DAILY ASPIRIN [Concomitant]
  5. SYNTHROID [Concomitant]

REACTIONS (7)
  - Pain [None]
  - Abdominal distension [None]
  - Bladder pain [None]
  - Bladder disorder [None]
  - Gastrointestinal motility disorder [None]
  - Urinary retention [None]
  - Dysuria [None]
